FAERS Safety Report 12936759 (Version 1)
Quarter: 2016Q4

REPORT INFORMATION
  Report Type: Spontaneous
  Country: JP (occurrence: JP)
  Receive Date: 20161114
  Receipt Date: 20161114
  Transmission Date: 20170207
  Serious: Yes (Hospitalization, Other)
  Sender: FDA-Public Use
  Company Number: JP-PFIZER INC-2016511225

PATIENT
  Age: 45 Year
  Sex: Male
  Weight: 53 kg

DRUGS (6)
  1. ENSURE [Concomitant]
     Active Substance: AMINO ACIDS\DEXTROSE\ELECTROLYTES NOS\SOYBEAN OIL\VITAMINS
  2. OPSO [Concomitant]
     Active Substance: MORPHINE HYDROCHLORIDE
  3. TORISEL [Suspect]
     Active Substance: TEMSIROLIMUS
     Indication: RENAL CANCER
     Dosage: 25 MG ONCE WEEKLY
     Route: 041
     Dates: start: 20160727, end: 20160923
  4. URSO [Concomitant]
     Active Substance: URSODIOL
  5. FENTOS [Concomitant]
     Active Substance: FENTANYL
  6. ADONA [Concomitant]
     Active Substance: CARBAZOCHROME SODIUM SULFONATE

REACTIONS (3)
  - Pleural effusion [Not Recovered/Not Resolved]
  - Haemoptysis [Not Recovered/Not Resolved]
  - Interstitial lung disease [Recovering/Resolving]

NARRATIVE: CASE EVENT DATE: 2016
